FAERS Safety Report 17855454 (Version 1)
Quarter: 2020Q2

REPORT INFORMATION
  Report Type: Spontaneous
  Country: CH (occurrence: CH)
  Receive Date: 20200603
  Receipt Date: 20200603
  Transmission Date: 20200714
  Serious: Yes (Other)
  Sender: FDA-Public Use
  Company Number: CH-SA-2020SA134894

PATIENT

DRUGS (2)
  1. PREDNISONE. [Suspect]
     Active Substance: PREDNISONE
     Indication: BIRDSHOT CHORIORETINOPATHY
     Route: 048
  2. TRIAMCINOLONE ACETONIDE. [Suspect]
     Active Substance: TRIAMCINOLONE ACETONIDE
     Indication: BIRDSHOT CHORIORETINOPATHY
     Dosage: SUB-TENON^S TRIAMCINOLONE INJECTIONS (4X)
     Route: 047

REACTIONS (6)
  - Fatigue [Unknown]
  - Intraocular pressure increased [Unknown]
  - Renal failure [Unknown]
  - Anaemia [Unknown]
  - Mood swings [Unknown]
  - Hirsutism [Unknown]
